FAERS Safety Report 11864988 (Version 2)
Quarter: 2016Q1

REPORT INFORMATION
  Report Type: Report from Study
  Country: CN (occurrence: CN)
  Receive Date: 20151223
  Receipt Date: 20160113
  Transmission Date: 20160526
  Serious: Yes (Other)
  Sender: FDA-Public Use
  Company Number: CN-BRISTOL-MYERS SQUIBB COMPANY-BMS-2015-087674

PATIENT
  Age: 66 Year
  Sex: Female
  Weight: 70 kg

DRUGS (1)
  1. CETUXIMAB [Suspect]
     Active Substance: CETUXIMAB
     Indication: COLON CANCER METASTATIC
     Dosage: UNK, QWK
     Route: 065
     Dates: start: 20150930

REACTIONS (1)
  - Performance status decreased [Recovering/Resolving]

NARRATIVE: CASE EVENT DATE: 20151201
